FAERS Safety Report 8278003-9 (Version None)
Quarter: 2012Q2

REPORT INFORMATION
  Report Type: 
  Country: None (occurrence: None)
  Receive Date: 20120412
  Receipt Date: 20120410
  Transmission Date: 20120825
  Serious: Yes (Other)
  Sender: FDA-Public Use
  Company Number: CA-BRACCO-000487

PATIENT
  Sex: Male
  Weight: 90 kg

DRUGS (2)
  1. PROHANCE [Suspect]
     Indication: NUCLEAR MAGNETIC RESONANCE IMAGING BRAIN
     Route: 042
     Dates: start: 20120214, end: 20120214
  2. PROHANCE [Suspect]
     Indication: BRAIN TUMOUR OPERATION
     Route: 042
     Dates: start: 20120214, end: 20120214

REACTIONS (4)
  - GENERALISED ERYTHEMA [None]
  - NEUROGENIC SHOCK [None]
  - ARRHYTHMIA [None]
  - DYSPNOEA [None]
